FAERS Safety Report 13953829 (Version 1)
Quarter: 2017Q3

REPORT INFORMATION
  Report Type: Spontaneous
  Country: US (occurrence: US)
  Receive Date: 20170908
  Receipt Date: 20170908
  Transmission Date: 20171128
  Serious: Yes (Other)
  Sender: FDA-Public Use
  Company Number: None

PATIENT
  Age: 64 Year
  Sex: Female

DRUGS (1)
  1. BACLOFEN. [Suspect]
     Active Substance: BACLOFEN
     Indication: MUSCLE SPASMS
     Route: 048
     Dates: start: 20170829, end: 20170906

REACTIONS (4)
  - Product substitution issue [None]
  - Drug effect increased [None]
  - Adverse drug reaction [None]
  - Somnolence [None]

NARRATIVE: CASE EVENT DATE: 20170830
